FAERS Safety Report 23890241 (Version 1)
Quarter: 2024Q2

REPORT INFORMATION
  Report Type: Spontaneous
  Country: US (occurrence: US)
  Receive Date: 20240523
  Receipt Date: 20240523
  Transmission Date: 20240716
  Serious: No
  Sender: FDA-Public Use
  Company Number: US-TEVA-VS-3199831

PATIENT
  Age: 72 Year

DRUGS (2)
  1. FLUTICASONE PROPIONATE AND SALMETEROL [Suspect]
     Active Substance: FLUTICASONE PROPIONATE\SALMETEROL XINAFOATE
     Indication: Product used for unknown indication
     Dosage: DOSE:100/50 MCG/DOSE-MCG/DOSE
     Route: 065
  2. FLUTICASONE PROPIONATE AND SALMETEROL [Suspect]
     Active Substance: FLUTICASONE PROPIONATE\SALMETEROL XINAFOATE

REACTIONS (5)
  - Wheezing [Not Recovered/Not Resolved]
  - Nightmare [Unknown]
  - Abnormal dreams [Not Recovered/Not Resolved]
  - Inappropriate schedule of product administration [Unknown]
  - Cough [Not Recovered/Not Resolved]

NARRATIVE: CASE EVENT DATE: 20240101
